FAERS Safety Report 8465573-0 (Version None)
Quarter: 2012Q2

REPORT INFORMATION
  Report Type: 
  Country: None (occurrence: None)
  Receive Date: 20120626
  Receipt Date: 20120618
  Transmission Date: 20120825
  Serious: Yes (Hospitalization, Other)
  Sender: FDA-Public Use
  Company Number: US-BAYER-2012-062078

PATIENT
  Age: 24 Year
  Sex: Female

DRUGS (5)
  1. YAZ [Suspect]
  2. PAROXETINE HCL [Concomitant]
     Dosage: 20 MG, UNK
     Route: 048
     Dates: start: 20080808
  3. PAXIL [Concomitant]
     Dosage: 20 MG, UNK
  4. HYDROCODONE BITARTRATE AND ACETAMINOPHEN [Concomitant]
     Dosage: 5-500 MG
  5. DOXYCYCLINE [Concomitant]
     Dosage: 100 MG, UNK
     Route: 048
     Dates: start: 20080927

REACTIONS (2)
  - CHOLECYSTITIS CHRONIC [None]
  - PULMONARY EMBOLISM [None]
